FAERS Safety Report 24705173 (Version 1)
Quarter: 2024Q4

REPORT INFORMATION
  Report Type: Report from Study
  Country: US (occurrence: US)
  Receive Date: 20241206
  Receipt Date: 20241206
  Transmission Date: 20250115
  Serious: Yes (Hospitalization, Other)
  Sender: TAKEDA
  Company Number: US-TAKEDA-2024TUS118552

PATIENT
  Age: 24 Year
  Sex: Male
  Weight: 98 kg

DRUGS (10)
  1. MARIBAVIR [Suspect]
     Active Substance: MARIBAVIR
     Indication: Cytomegalovirus infection
     Dosage: 400 MILLIGRAM, BID
     Dates: start: 20241112
  2. HYDRALAZINE HYDROCHLORIDE [Concomitant]
     Active Substance: HYDRALAZINE HYDROCHLORIDE
     Dosage: 75 MILLIGRAM, TID
     Dates: start: 20241107
  3. PROCARDIA [Concomitant]
     Active Substance: NIFEDIPINE
     Dosage: 60 MILLIGRAM, BID
     Dates: start: 20241107
  4. COREG [Concomitant]
     Active Substance: CARVEDILOL
     Dosage: 25 MILLIGRAM, BID
     Dates: start: 20241107
  5. DELTASONE [Concomitant]
     Active Substance: PREDNISONE
     Dosage: 10 MILLIGRAM, QD
     Dates: start: 20241107
  6. PROGRAF [Concomitant]
     Active Substance: TACROLIMUS
     Dosage: 2 MILLIGRAM, BID
     Dates: start: 20241107
  7. ADALAT CC [Concomitant]
     Active Substance: NIFEDIPINE
     Dosage: UNK
  8. CELLCEPT [Concomitant]
     Active Substance: MYCOPHENOLATE MOFETIL
     Dosage: UNK
  9. BACTRIM [Concomitant]
     Active Substance: SULFAMETHOXAZOLE\TRIMETHOPRIM
     Dosage: UNK
  10. VALCYTE [Concomitant]
     Active Substance: VALGANCICLOVIR HYDROCHLORIDE

REACTIONS (11)
  - Pancytopenia [Unknown]
  - Immunosuppression [Unknown]
  - Renal hypertension [Unknown]
  - Hydronephrosis [Unknown]
  - Metabolic acidosis [Unknown]
  - Cytomegalovirus viraemia [Unknown]
  - Nephropathy [Unknown]
  - Nephritis [Unknown]
  - Acute kidney injury [Unknown]
  - Neutropenia [Unknown]
  - Off label use [Unknown]

NARRATIVE: CASE EVENT DATE: 20241113
